FAERS Safety Report 19939698 (Version 1)
Quarter: 2021Q4

REPORT INFORMATION
  Report Type: 
  Country: US (occurrence: US)
  Receive Date: 20211012
  Receipt Date: 20211012
  Transmission Date: 20220304
  Serious: No
  Sender: FDA-Public Use
  Company Number: US-C B FLEET CO INC-202101-US-000128

PATIENT
  Sex: Female

DRUGS (1)
  1. MONISTAT 3 COMBINATION PACK 3 OVULE INSERTS [Suspect]
     Active Substance: MICONAZOLE NITRATE
     Indication: Fungal infection
     Dosage: USED 2 NIGHTS
     Route: 067
     Dates: end: 20210106

REACTIONS (2)
  - Uterine spasm [Unknown]
  - Vaginal haemorrhage [Unknown]
